FAERS Safety Report 8110579-4 (Version None)
Quarter: 2012Q1

REPORT INFORMATION
  Report Type: 
  Country: None (occurrence: None)
  Receive Date: 20120203
  Receipt Date: 20120127
  Transmission Date: 20120608
  Serious: Yes (Other)
  Sender: FDA-Public Use
  Company Number: US-PFIZER INC-2012024458

PATIENT
  Sex: Female

DRUGS (1)
  1. SUTENT [Suspect]
     Indication: UTERINE CANCER
     Dosage: 50 MG, UNK
     Dates: start: 20120124, end: 20120126

REACTIONS (3)
  - DISEASE PROGRESSION [None]
  - UTERINE CANCER [None]
  - GASTROINTESTINAL HAEMORRHAGE [None]
